FAERS Safety Report 22677409 (Version 2)
Quarter: 2023Q4

REPORT INFORMATION
  Report Type: Spontaneous
  Country: US (occurrence: US)
  Receive Date: 20230706
  Receipt Date: 20231220
  Transmission Date: 20240110
  Serious: Yes (Other)
  Sender: FDA-Public Use
  Company Number: US-PFIZER INC-202300238320

PATIENT
  Age: 6 Year
  Sex: Female
  Weight: 17.234 kg

DRUGS (1)
  1. OXBRYTA [Suspect]
     Active Substance: VOXELOTOR
     Dosage: 300MG 2 TABLETS FOR ORAL SUSPENSION BY MOUTH ONCE DAILY
     Route: 048
     Dates: end: 2022

REACTIONS (1)
  - Transfusion [Unknown]
